FAERS Safety Report 5306495-3 (Version None)
Quarter: 2007Q2

REPORT INFORMATION
  Report Type: 
  Country: None (occurrence: None)
  Receive Date: 20070417
  Receipt Date: 20070405
  Transmission Date: 20071010
  Serious: Yes (Other)
  Sender: FDA-Public Use
  Company Number: 02100-JPN-07-0182

PATIENT
  Age: 75 Year
  Sex: Female

DRUGS (4)
  1. CILOSTAZOL [Suspect]
     Indication: CEREBRAL INFARCTION
     Dosage: 200 MG ORAL
     Route: 048
     Dates: start: 20070317, end: 20070320
  2. CILNIDIPINE [Concomitant]
  3. LOSARTAN POTASSIUM [Concomitant]
  4. SENNOSIDE [Concomitant]

REACTIONS (4)
  - PYREXIA [None]
  - TOXIC SKIN ERUPTION [None]
  - WHEEZING [None]
  - WHITE BLOOD CELL COUNT INCREASED [None]
